FAERS Safety Report 8126874-9 (Version None)
Quarter: 2012Q1

REPORT INFORMATION
  Report Type: 
  Country: None (occurrence: None)
  Receive Date: 20120210
  Receipt Date: 20120206
  Transmission Date: 20120608
  Serious: No
  Sender: FDA-Public Use
  Company Number: US-PFIZER INC-2012032388

PATIENT
  Sex: Female
  Weight: 48.98 kg

DRUGS (2)
  1. RELPAX [Suspect]
     Indication: HEADACHE
  2. RELPAX [Suspect]
     Indication: MIGRAINE
     Dosage: 20 MG, AS NEEDED
     Route: 048
     Dates: start: 20111222, end: 20111222

REACTIONS (2)
  - VOMITING [None]
  - ABDOMINAL PAIN UPPER [None]
